FAERS Safety Report 17005994 (Version 1)
Quarter: 2019Q4

REPORT INFORMATION
  Report Type: Spontaneous
  Country: US (occurrence: US)
  Receive Date: 20191107
  Receipt Date: 20191107
  Transmission Date: 20200122
  Serious: Yes (Other)
  Sender: FDA-Public Use
  Company Number: US-SA-2017SA266643

PATIENT
  Age: 51 Year
  Sex: Female

DRUGS (19)
  1. FLUOROURACIL. [Concomitant]
     Active Substance: FLUOROURACIL
     Indication: BREAST CANCER FEMALE
     Dosage: UNK UNK, Q3W
     Dates: start: 20011112, end: 20011112
  2. AMBIEN [Concomitant]
     Active Substance: ZOLPIDEM TARTRATE
     Dosage: 1 DF, HS
  3. RASUVO [Concomitant]
     Active Substance: METHOTREXATE SODIUM
     Dosage: UNK UNK, Q3W
     Dates: start: 20011227, end: 20011227
  4. NEOSAR [Concomitant]
     Active Substance: CYCLOPHOSPHAMIDE
     Dosage: UNK UNK, Q3W
     Dates: start: 20011227, end: 20011227
  5. FLUOROURACIL. [Concomitant]
     Active Substance: FLUOROURACIL
     Dosage: UNK UNK, Q3W
     Dates: start: 20011227, end: 20011227
  6. DEXAMETHASONE. [Concomitant]
     Active Substance: DEXAMETHASONE
  7. RASUVO [Concomitant]
     Active Substance: METHOTREXATE SODIUM
     Indication: BREAST CANCER FEMALE
     Dosage: UNK UNK, Q3W
     Dates: start: 20011112, end: 20011112
  8. CLONIDINE. [Concomitant]
     Active Substance: CLONIDINE
     Dosage: 1 MG, TID
     Route: 048
  9. PREVACID [Concomitant]
     Active Substance: LANSOPRAZOLE
     Dosage: UNK UNK, PRN
  10. TAXOTERE [Suspect]
     Active Substance: DOCETAXEL
     Dosage: 150 MG, Q3W
     Route: 042
     Dates: start: 20011205, end: 20011205
  11. INDERAL [Concomitant]
     Active Substance: PROPRANOLOL HYDROCHLORIDE
     Dosage: 20 MG, BID
     Route: 048
  12. VIOXX [Concomitant]
     Active Substance: ROFECOXIB
     Dosage: 12.5 MG, HS
     Route: 048
  13. NEOSAR [Concomitant]
     Active Substance: CYCLOPHOSPHAMIDE
     Indication: BREAST CANCER FEMALE
     Dosage: UNK UNK, Q3W
     Dates: start: 20011112, end: 20011112
  14. ATACAND [Concomitant]
     Active Substance: CANDESARTAN CILEXETIL
     Dosage: 0.5 DF, QOD
  15. OXYCONTIN [Concomitant]
     Active Substance: OXYCODONE HYDROCHLORIDE
     Dosage: 10 MG, HS
  16. TAXOTERE [Suspect]
     Active Substance: DOCETAXEL
     Indication: BREAST CANCER FEMALE
     Dosage: 150 MG, Q3W
     Route: 042
     Dates: start: 20011112, end: 20011112
  17. ZOFRAN [Concomitant]
     Active Substance: ONDANSETRON HYDROCHLORIDE
     Route: 048
  18. TAXOTERE [Suspect]
     Active Substance: DOCETAXEL
     Dosage: 150 MG, Q3W
     Route: 042
     Dates: start: 20011227, end: 20011227
  19. VICODIN [Concomitant]
     Active Substance: ACETAMINOPHEN\HYDROCODONE BITARTRATE
     Dosage: UNK UNK, PRN

REACTIONS (5)
  - Alopecia [Not Recovered/Not Resolved]
  - Pain [Unknown]
  - Emotional distress [Unknown]
  - Anxiety [Unknown]
  - Impaired quality of life [Unknown]

NARRATIVE: CASE EVENT DATE: 20020605
